FAERS Safety Report 4648274-6 (Version None)
Quarter: 2005Q2

REPORT INFORMATION
  Report Type: 
  Country: None (occurrence: None)
  Receive Date: 20050331
  Receipt Date: 20050201
  Transmission Date: 20051028
  Serious: No
  Sender: FDA-Public Use
  Company Number: 05P-163-0289070-00

PATIENT
  Age: 67 Year
  Sex: Female

DRUGS (9)
  1. HUMIRA [Suspect]
     Indication: RHEUMATOID ARTHRITIS
     Dosage: 40 MG, 1 IN 2 WK, SUBCUTANEOUS
     Route: 058
     Dates: start: 20040901, end: 20050115
  2. INDOMETHACIN [Concomitant]
  3. DIAZEPAM [Concomitant]
  4. CARISOPRODOL [Concomitant]
  5. LEXAPRO [Concomitant]
  6. CYMBOLTA [Concomitant]
  7. GABAPENTIN [Concomitant]
  8. MEPERGAN [Concomitant]
  9. ZOCOR [Concomitant]

REACTIONS (11)
  - ABDOMINAL PAIN UPPER [None]
  - ATELECTASIS [None]
  - CHEST PAIN [None]
  - DRY MOUTH [None]
  - INFECTION [None]
  - NIGHT SWEATS [None]
  - PYREXIA [None]
  - RALES [None]
  - VAGINAL DISCHARGE [None]
  - VISUAL DISTURBANCE [None]
  - WHEEZING [None]
